FAERS Safety Report 4535386-0 (Version None)
Quarter: 2004Q4

REPORT INFORMATION
  Report Type: 
  Country: None (occurrence: None)
  Receive Date: 20041214
  Receipt Date: 20040909
  Transmission Date: 20050328
  Serious: No
  Sender: FDA-Public Use
  Company Number: 2004234537US

PATIENT
  Sex: Female

DRUGS (2)
  1. BEXTRA [Suspect]
     Indication: ARTHRITIS
     Dates: start: 20040908
  2. ULTRAM [Suspect]

REACTIONS (4)
  - DRUG INTERACTION [None]
  - DRY MOUTH [None]
  - INSOMNIA [None]
  - NAUSEA [None]
